FAERS Safety Report 4617994-1 (Version None)
Quarter: 2005Q1

REPORT INFORMATION
  Report Type: 
  Country: None (occurrence: None)
  Receive Date: 20050322
  Receipt Date: 20050314
  Transmission Date: 20050727
  Serious: Yes (Death)
  Sender: FDA-Public Use
  Company Number: 2004BI002417

PATIENT
  Age: 61 Year
  Sex: Male
  Weight: 87 kg

DRUGS (7)
  1. ZEVALIN [Suspect]
     Indication: NON-HODGKIN'S LYMPHOMA
     Dosage: UNKNOWN; 1X; IV
     Route: 042
     Dates: start: 20041101, end: 20041101
  2. ZEVALIN [Suspect]
     Indication: NON-HODGKIN'S LYMPHOMA
     Dosage: UNKNOWN; 1X; IV
     Route: 042
     Dates: start: 20041110, end: 20041110
  3. ZEVALIN [Suspect]
     Indication: NON-HODGKIN'S LYMPHOMA
     Dosage: UNKNOWN; 1X; IV
     Route: 042
     Dates: start: 20041110, end: 20041110
  4. ZEVALIN [Suspect]
  5. ZEVALIN [Suspect]
  6. DEXAMETHASONE [Concomitant]
  7. OXYCODONE [Concomitant]

REACTIONS (4)
  - ABDOMINAL PAIN UPPER [None]
  - CARDIO-RESPIRATORY ARREST [None]
  - CIRCULATORY COLLAPSE [None]
  - MYOCARDIAL INFARCTION [None]
